FAERS Safety Report 6069638-2 (Version None)
Quarter: 2009Q1

REPORT INFORMATION
  Report Type: 
  Country: None (occurrence: None)
  Receive Date: 20090209
  Receipt Date: 20090204
  Transmission Date: 20090719
  Serious: Yes (Death)
  Sender: FDA-Public Use
  Company Number: FR-JNJFOC-20090200804

PATIENT
  Sex: Male

DRUGS (16)
  1. DURAGESIC-100 [Suspect]
     Route: 062
  2. DURAGESIC-100 [Suspect]
     Indication: PAIN
     Route: 062
  3. LEVOTHYROX [Concomitant]
     Dosage: 75 UG THE MORNING
  4. LOXEN [Concomitant]
     Dosage: 50 MG THE EVENING
  5. DIFFU K [Concomitant]
  6. LANTUS [Concomitant]
  7. NOVORAPID [Concomitant]
  8. OGAST [Concomitant]
  9. CALCIDOSE [Concomitant]
  10. RIVOTRIL [Concomitant]
  11. SOLUPRED [Concomitant]
  12. ZOLOFT [Concomitant]
  13. XANAX [Concomitant]
  14. PREVISCAN [Concomitant]
  15. PREVISCAN [Concomitant]
  16. TRAMADOL HYDROCHLORIDE [Concomitant]

REACTIONS (11)
  - BALANCE DISORDER [None]
  - BRADYPNOEA [None]
  - DISORIENTATION [None]
  - DISTURBANCE IN ATTENTION [None]
  - GENERAL PHYSICAL HEALTH DETERIORATION [None]
  - HALLUCINATION [None]
  - HEADACHE [None]
  - MALAISE [None]
  - PAIN [None]
  - SOMNOLENCE [None]
  - URINARY RETENTION [None]
